FAERS Safety Report 4765395-8 (Version None)
Quarter: 2005Q3

REPORT INFORMATION
  Report Type: 
  Country: None (occurrence: None)
  Receive Date: 20050908
  Receipt Date: 20050908
  Transmission Date: 20060218
  Serious: Yes (Hospitalization)
  Sender: FDA-Public Use
  Company Number: None

PATIENT
  Sex: Male
  Weight: 108.8633 kg

DRUGS (2)
  1. KADIAN [Suspect]
     Indication: BACK PAIN
  2. OXYCODONE HCL [Suspect]
     Indication: BACK PAIN

REACTIONS (4)
  - ASTHENIA [None]
  - FALL [None]
  - OVERDOSE [None]
  - RHABDOMYOLYSIS [None]
